FAERS Safety Report 14519384 (Version 1)
Quarter: 2018Q1

REPORT INFORMATION
  Report Type: Spontaneous
  Country: JP (occurrence: JP)
  Receive Date: 20180212
  Receipt Date: 20180212
  Transmission Date: 20180509
  Serious: Yes (Hospitalization)
  Sender: FDA-Public Use
  Company Number: JP-JNJFOC-20180214111

PATIENT
  Age: 68 Year
  Sex: Female
  Weight: 80.95 kg

DRUGS (29)
  1. LOXOPROFEN [Concomitant]
     Active Substance: LOXOPROFEN
     Route: 048
  2. ASCORBIC ACID. [Concomitant]
     Active Substance: ASCORBIC ACID
     Route: 042
  3. PROMETHAZINE W/CODEINE [Concomitant]
     Active Substance: CODEINE\PROMETHAZINE
     Route: 048
  4. DIFENIDOL HYDROCHLORIDE [Concomitant]
     Active Substance: DIPHENIDOL HYDROCHLORIDE
     Route: 048
  5. MAGNESIUM [Concomitant]
     Active Substance: MAGNESIUM
     Route: 048
  6. CYANOCOBALAMIN W/PYRIDOXINE/THIAMINE DISULFID [Concomitant]
     Route: 042
  7. CEFTRIAXONE. [Concomitant]
     Active Substance: CEFTRIAXONE
     Route: 041
     Dates: start: 20161220, end: 20161220
  8. BESOFTEN [Concomitant]
     Active Substance: PENTOSAN POLYSULFATE SODIUM
     Route: 065
  9. SULBACTAM SODIUM [Concomitant]
     Active Substance: SULBACTAM SODIUM
     Route: 042
     Dates: start: 20161230, end: 20161230
  10. SOLDEM 1 [Concomitant]
     Active Substance: DEXTROSE\SODIUM CHLORIDE\SODIUM LACTATE
     Route: 041
     Dates: start: 20161228, end: 20161228
  11. SODIUM VALPROATE [Concomitant]
     Active Substance: VALPROATE SODIUM
     Route: 065
  12. METFORMIN [Concomitant]
     Active Substance: METFORMIN HYDROCHLORIDE
     Route: 065
  13. CLARITHROMYCIN. [Concomitant]
     Active Substance: CLARITHROMYCIN
     Route: 065
  14. AMBROXOL HYDROCHLORIDE [Concomitant]
     Active Substance: AMBROXOL HYDROCHLORIDE
     Route: 065
  15. ESTAZOLAM. [Concomitant]
     Active Substance: ESTAZOLAM
     Route: 065
  16. AZUNOL [Concomitant]
     Active Substance: SODIUM GUALENATE
     Route: 049
  17. XARELTO [Suspect]
     Active Substance: RIVAROXABAN
     Indication: ATRIAL FIBRILLATION
     Route: 048
     Dates: start: 20161012, end: 20170809
  18. SOLDEM 1 [Concomitant]
     Active Substance: DEXTROSE\SODIUM CHLORIDE\SODIUM LACTATE
     Route: 041
     Dates: start: 20161227, end: 20161227
  19. CEFTRIAXONE. [Concomitant]
     Active Substance: CEFTRIAXONE
     Route: 041
     Dates: start: 20161228, end: 20161228
  20. RISPERIDONE. [Concomitant]
     Active Substance: RISPERIDONE
     Route: 065
  21. POVIDONE-IODINE. [Concomitant]
     Active Substance: POVIDONE-IODINE
     Route: 003
  22. SHINLUCK [Concomitant]
     Active Substance: SODIUM PICOSULFATE
     Route: 065
  23. METFORMIN [Concomitant]
     Active Substance: METFORMIN HYDROCHLORIDE
     Route: 065
  24. CEFTRIAXONE. [Concomitant]
     Active Substance: CEFTRIAXONE
     Route: 041
     Dates: start: 20161227, end: 20161227
  25. SULBACTAM SODIUM [Concomitant]
     Active Substance: SULBACTAM SODIUM
     Route: 042
     Dates: start: 20161231, end: 20170108
  26. OLMETEC [Concomitant]
     Active Substance: OLMESARTAN MEDOXOMIL
     Route: 048
  27. ESTAZOLAM. [Concomitant]
     Active Substance: ESTAZOLAM
     Route: 065
  28. MAINTATE [Concomitant]
     Active Substance: BISOPROLOL FUMARATE
     Route: 048
  29. SOLDEM 1 [Concomitant]
     Active Substance: DEXTROSE\SODIUM CHLORIDE\SODIUM LACTATE
     Route: 041
     Dates: start: 20161220, end: 20161220

REACTIONS (8)
  - Pneumonia [Unknown]
  - Altered state of consciousness [Recovered/Resolved]
  - Gait disturbance [Unknown]
  - Sepsis [Unknown]
  - White blood cell count decreased [Recovering/Resolving]
  - Bradycardia [Unknown]
  - Cardiogenic shock [Unknown]
  - Lower limb fracture [Unknown]

NARRATIVE: CASE EVENT DATE: 20161017
